FAERS Safety Report 18783296 (Version 1)
Quarter: 2021Q1

REPORT INFORMATION
  Report Type: Spontaneous
  Country: US (occurrence: US)
  Receive Date: 20210125
  Receipt Date: 20210125
  Transmission Date: 20210419
  Serious: No
  Sender: FDA-Public Use
  Company Number: US-TEVA-2021-US-1870371

PATIENT
  Sex: Female

DRUGS (13)
  1. FLUOXETINE HCL 10 MG [Concomitant]
  2. AUSTEDO [Suspect]
     Active Substance: DEUTETRABENAZINE
     Indication: TARDIVE DYSKINESIA
     Route: 048
     Dates: start: 2019
  3. AMANTADINE HCL 100 MG [Concomitant]
  4. GABAPENTIN 100 MG [Concomitant]
     Active Substance: GABAPENTIN
  5. CLONAZEPAM 0.5 MG [Concomitant]
     Active Substance: CLONAZEPAM
  6. MELOXICAM 7.5 MG [Concomitant]
     Active Substance: MELOXICAM
  7. ATORVASTATIN CALCIUM 10 MG [Concomitant]
  8. AUSTEDO [Suspect]
     Active Substance: DEUTETRABENAZINE
     Dosage: 12 MILLIGRAM DAILY;
     Route: 048
  9. ISOSORBID MONONITRATE [Concomitant]
     Active Substance: ISOSORBIDE MONONITRATE
  10. LOSARTAN?HYDROCHLOROTHIAZIDE [Concomitant]
     Active Substance: HYDROCHLOROTHIAZIDE\LOSARTAN
  11. OMEPRAZOL 20 MG [Concomitant]
     Active Substance: OMEPRAZOLE
  12. POTASSIUM 595 (99) MG [Concomitant]
  13. AMLODIPINE BESYLATE. [Concomitant]
     Active Substance: AMLODIPINE BESYLATE

REACTIONS (4)
  - Tongue movement disturbance [Unknown]
  - Speech disorder [Unknown]
  - Bruxism [Unknown]
  - Drug ineffective [Unknown]
